FAERS Safety Report 8272025-X (Version None)
Quarter: 2012Q2

REPORT INFORMATION
  Report Type: 
  Country: None (occurrence: None)
  Receive Date: 20120410
  Receipt Date: 20120330
  Transmission Date: 20120825
  Serious: Yes (Other)
  Sender: FDA-Public Use
  Company Number: FR-JNJFOC-20120401202

PATIENT
  Age: 20 Year
  Sex: Female

DRUGS (2)
  1. REMICADE [Suspect]
     Indication: CROHN'S DISEASE
     Dosage: 6TH INFUSION
     Route: 042
  2. REMICADE [Suspect]
     Dosage: SIXTH INFUSION
     Route: 042
     Dates: start: 20120328

REACTIONS (4)
  - CHOKING [None]
  - ASPHYXIA [None]
  - INFUSION RELATED REACTION [None]
  - ERYTHEMA [None]
